FAERS Safety Report 9958215 (Version 2)
Quarter: 2015Q1

REPORT INFORMATION
  Report Type: Report from Study
  Country: AR (occurrence: AR)
  Receive Date: 20140304
  Receipt Date: 20150325
  Transmission Date: 20150721
  Serious: Yes (Other)
  Sender: FDA-Public Use
  Company Number: AR-ROCHE-1358160

PATIENT
  Sex: Female

DRUGS (2)
  1. OCUVITE PRESERVISION [Concomitant]
  2. LUCENTIS [Suspect]
     Active Substance: RANIBIZUMAB
     Indication: MACULOPATHY
     Route: 050

REACTIONS (6)
  - Head discomfort [Unknown]
  - Eye disorder [Unknown]
  - Injury [Unknown]
  - Crying [Unknown]
  - Emotional distress [Unknown]
  - Visual impairment [Unknown]
